FAERS Safety Report 9988793 (Version 1)
Quarter: 2013Q4

REPORT INFORMATION
  Report Type: Spontaneous
  Country: IT (occurrence: None)
  Receive Date: 20131018
  Receipt Date: 20131018
  Transmission Date: 20140711
  Serious: Yes (Other)
  Sender: FDA-Public Use
  Company Number: AUR-APL-2013-08571

PATIENT
  Age: 42 Year
  Sex: Female

DRUGS (1)
  1. AMOXICILLIN+CLAVULANIC ACID [Suspect]
     Indication: BRONCHITIS
     Dosage: 2 GM (1 GM, 2 IN 1 D), UNKNOWN
     Dates: start: 201307, end: 201307

REACTIONS (1)
  - Hypoacusis [None]
